FAERS Safety Report 18414865 (Version 2)
Quarter: 2021Q2

REPORT INFORMATION
  Report Type: Report from Study
  Country: None (occurrence: CA)
  Receive Date: 20201022
  Receipt Date: 20210405
  Transmission Date: 20210717
  Serious: Yes (Hospitalization, Other)
  Sender: FDA-Public Use
  Company Number: CA-ABBVIE-20K-028-3306442-00

PATIENT
  Age: 57 Year
  Sex: Female

DRUGS (1)
  1. HUMIRA [Suspect]
     Active Substance: ADALIMUMAB
     Indication: ANKYLOSING SPONDYLITIS
     Route: 058
     Dates: start: 20171222

REACTIONS (24)
  - Musculoskeletal disorder [Not Recovered/Not Resolved]
  - Fall [Recovered/Resolved]
  - Amnesia [Not Recovered/Not Resolved]
  - Feeling cold [Unknown]
  - Chills [Recovered/Resolved]
  - Disturbance in attention [Not Recovered/Not Resolved]
  - Loss of consciousness [Recovered/Resolved]
  - Carpal tunnel syndrome [Not Recovered/Not Resolved]
  - Peripheral swelling [Not Recovered/Not Resolved]
  - Sensitive skin [Unknown]
  - Cervical vertebral fracture [Unknown]
  - Hemiplegia [Recovered/Resolved]
  - Fall [Recovered/Resolved]
  - Fall [Not Recovered/Not Resolved]
  - Wrist fracture [Unknown]
  - Spinal fracture [Unknown]
  - Anal incontinence [Not Recovered/Not Resolved]
  - Skin discolouration [Not Recovered/Not Resolved]
  - Skin injury [Not Recovered/Not Resolved]
  - Balance disorder [Unknown]
  - Phlebitis [Unknown]
  - Neck pain [Not Recovered/Not Resolved]
  - Breast cancer [Unknown]
  - Fall [Recovered/Resolved]

NARRATIVE: CASE EVENT DATE: 201712
